FAERS Safety Report 21794215 (Version 1)
Quarter: 2022Q4

REPORT INFORMATION
  Report Type: Spontaneous
  Country: US (occurrence: None)
  Receive Date: 20221228
  Receipt Date: 20221228
  Transmission Date: 20230113
  Serious: Yes (Hospitalization)
  Sender: FDA-Public Use
  Company Number: None

PATIENT
  Age: 74 Year
  Sex: Male
  Weight: 109.1 kg

DRUGS (1)
  1. BORTEZOMIB [Suspect]
     Active Substance: BORTEZOMIB
     Indication: Plasma cell myeloma
     Dosage: OTHER FREQUENCY : DAYS 1, 4, 8;?
     Route: 058
     Dates: start: 20221216, end: 20221223

REACTIONS (6)
  - Abdominal pain upper [None]
  - Chest pain [None]
  - Constipation [None]
  - Hypoaesthesia [None]
  - Hypoaesthesia [None]
  - Pancreatitis acute [None]

NARRATIVE: CASE EVENT DATE: 20221226
